FAERS Safety Report 14882789 (Version 17)
Quarter: 2019Q3

REPORT INFORMATION
  Report Type: Spontaneous
  Country: CA (occurrence: CA)
  Receive Date: 20180511
  Receipt Date: 20190821
  Transmission Date: 20191004
  Serious: Yes (Hospitalization, Other)
  Sender: FDA-Public Use
  Company Number: CA-CELLTRION INC.-2017CA011444

PATIENT

DRUGS (39)
  1. INFLECTRA [Suspect]
     Active Substance: INFLIXIMAB-DYYB
     Dosage: 850 MG, MONTHLY (MAINTENANCE EVERY 4 WEEKS)
     Route: 042
     Dates: start: 20180116
  2. INFLECTRA [Suspect]
     Active Substance: INFLIXIMAB-DYYB
     Dosage: 780 MG, MONTHLY (EVERY 4 WEEKS)
     Route: 042
     Dates: start: 20181228
  3. INFLECTRA [Suspect]
     Active Substance: INFLIXIMAB-DYYB
     Dosage: 780 MG, MONTHLY (EVERY 4 WEEKS)
     Route: 042
     Dates: start: 20190319
  4. SOLU-MEDROL [Concomitant]
     Active Substance: METHYLPREDNISOLONE SODIUM SUCCINATE
     Dosage: UNK
     Route: 065
  5. TELMISARTAN. [Concomitant]
     Active Substance: TELMISARTAN
     Dosage: UNK
     Route: 065
  6. TRAZODONE [Concomitant]
     Active Substance: TRAZODONE HYDROCHLORIDE
     Dosage: UNK
     Route: 065
  7. INFLECTRA [Suspect]
     Active Substance: INFLIXIMAB-DYYB
     Dosage: 650 MG, MAINTENANCE EVERY 6 WEEKS
     Route: 042
     Dates: start: 20171219
  8. INFLECTRA [Suspect]
     Active Substance: INFLIXIMAB-DYYB
     Dosage: 850 MG, EVERY 5 WEEKS
     Route: 042
     Dates: start: 20180320
  9. INFLECTRA [Suspect]
     Active Substance: INFLIXIMAB-DYYB
     Dosage: 800 MG, EVERY 6 WEEKS
     Route: 042
     Dates: start: 20180620
  10. INFLECTRA [Suspect]
     Active Substance: INFLIXIMAB-DYYB
     Dosage: 780 MG, MONTHLY (EVERY 4 WEEKS)
     Route: 042
     Dates: start: 20190219
  11. METFORMIN [Concomitant]
     Active Substance: METFORMIN HYDROCHLORIDE
     Dosage: UNK
     Route: 065
  12. INFLECTRA [Suspect]
     Active Substance: INFLIXIMAB-DYYB
     Dosage: 750 MG, AT 0, 2 WEEKS
     Route: 042
     Dates: start: 20170831
  13. INFLECTRA [Suspect]
     Active Substance: INFLIXIMAB-DYYB
     Dosage: 650 MG, MAINTENANCE EVERY 6 WEEKS
     Route: 042
     Dates: start: 20171106
  14. INFLECTRA [Suspect]
     Active Substance: INFLIXIMAB-DYYB
     Dosage: 800 MG, MONTHLY (EVERY 4 WEEKS)
     Route: 042
     Dates: start: 20181002
  15. INFLECTRA [Suspect]
     Active Substance: INFLIXIMAB-DYYB
     Dosage: 780 MG, MONTHLY (EVERY 4 WEEKS)
     Route: 042
     Dates: start: 20190611
  16. HYDROMORPHONE [Concomitant]
     Active Substance: HYDROMORPHONE
     Dosage: UNK, AS NEEDED
     Route: 065
  17. PLAVIX [Concomitant]
     Active Substance: CLOPIDOGREL BISULFATE
     Dosage: 75 MG, 1X/DAY
     Route: 065
     Dates: start: 2018
  18. INFLECTRA [Suspect]
     Active Substance: INFLIXIMAB-DYYB
     Dosage: 650 MG, MAINTENANCE EVERY 6 WEEKS
     Route: 042
     Dates: start: 20171219
  19. INFLECTRA [Suspect]
     Active Substance: INFLIXIMAB-DYYB
     Dosage: 850 MG, MONTHLY (MAINTENANCE EVERY 4 WEEKS)
     Route: 042
     Dates: start: 20180215
  20. INFLECTRA [Suspect]
     Active Substance: INFLIXIMAB-DYYB
     Dosage: 780 MG, MONTHLY (EVERY 4 WEEKS)
     Route: 042
     Dates: start: 20190710
  21. INFLECTRA [Suspect]
     Active Substance: INFLIXIMAB-DYYB
     Dosage: 780 MG, MONTHLY (EVERY 4 WEEKS)
     Route: 042
     Dates: start: 20190514
  22. INFLECTRA [Suspect]
     Active Substance: INFLIXIMAB-DYYB
     Dosage: 750 MG, AT 0, 2 WEEKS
     Route: 042
     Dates: start: 20170819
  23. INFLECTRA [Suspect]
     Active Substance: INFLIXIMAB-DYYB
     Dosage: 780 MG, MONTHLY (EVERY 4 WEEKS)
     Route: 042
     Dates: start: 20180906
  24. INFLECTRA [Suspect]
     Active Substance: INFLIXIMAB-DYYB
     Dosage: 800 MG, MONTHLY (EVERY 4 WEEKS)
     Route: 042
     Dates: start: 20181030
  25. PURINETHOL [Concomitant]
     Active Substance: MERCAPTOPURINE
     Dosage: UNK
  26. ASA [Concomitant]
     Active Substance: ASPIRIN
     Dosage: UNK
     Route: 065
  27. INFLECTRA [Suspect]
     Active Substance: INFLIXIMAB-DYYB
     Dosage: 400 MG, AT 6 WEEKS, THEN EVERY 8 WEEKS
     Route: 042
     Dates: start: 20170928
  28. INFLECTRA [Suspect]
     Active Substance: INFLIXIMAB-DYYB
     Dosage: 800 MG, EVERY 6 WEEKS
     Route: 042
     Dates: start: 20180502
  29. INFLECTRA [Suspect]
     Active Substance: INFLIXIMAB-DYYB
     Dosage: 800 MG, EVERY 6 WEEKS
     Route: 042
     Dates: start: 20180731
  30. INFLECTRA [Suspect]
     Active Substance: INFLIXIMAB-DYYB
     Dosage: 780 MG, MONTHLY (EVERY 4 WEEKS)
     Route: 042
     Dates: start: 20181127
  31. INFLECTRA [Suspect]
     Active Substance: INFLIXIMAB-DYYB
     Dosage: 780 MG, MONTHLY (EVERY 4 WEEKS)
     Route: 042
     Dates: start: 20190122
  32. INFLECTRA [Suspect]
     Active Substance: INFLIXIMAB-DYYB
     Dosage: 780 MG, MONTHLY (EVERY 4 WEEKS)
     Route: 042
     Dates: start: 20190416
  33. QUETIAPINE. [Concomitant]
     Active Substance: QUETIAPINE
     Dosage: UNK
  34. AMLODIPINE [Concomitant]
     Active Substance: AMLODIPINE BESYLATE
     Dosage: UNK
     Route: 065
  35. PANTOPRAZOLE [Concomitant]
     Active Substance: PANTOPRAZOLE
     Dosage: UNK
     Route: 065
  36. INFLECTRA [Suspect]
     Active Substance: INFLIXIMAB-DYYB
     Dosage: 650 MG, MAINTENANCE EVERY 6 WEEKS
     Route: 042
     Dates: start: 20171219
  37. INFLECTRA [Suspect]
     Active Substance: INFLIXIMAB-DYYB
     Dosage: 800 MG, EVERY 6 WEEKS
     Route: 042
     Dates: start: 20180731
  38. INFLECTRA [Suspect]
     Active Substance: INFLIXIMAB-DYYB
     Dosage: 780 MG, MONTHLY (EVERY 4 WEEKS)
     Route: 042
     Dates: start: 20190514
  39. INFLECTRA [Suspect]
     Active Substance: INFLIXIMAB-DYYB
     Dosage: 780 MG, MONTHLY (EVERY 4 WEEKS)
     Route: 042
     Dates: start: 20190807

REACTIONS (12)
  - Blood pressure fluctuation [Unknown]
  - Product use issue [Unknown]
  - Intentional product use issue [Unknown]
  - Rotator cuff syndrome [Recovering/Resolving]
  - Hypertension [Unknown]
  - Off label use [Unknown]
  - Weight increased [Unknown]
  - Uveitis [Unknown]
  - Condition aggravated [Unknown]
  - Gastrointestinal inflammation [Unknown]
  - Incorrect dose administered [Unknown]
  - Cough [Unknown]

NARRATIVE: CASE EVENT DATE: 20170819
